FAERS Safety Report 13550363 (Version 7)
Quarter: 2017Q3

REPORT INFORMATION
  Report Type: Spontaneous
  Country: KR (occurrence: KR)
  Receive Date: 20170516
  Receipt Date: 20170922
  Transmission Date: 20171127
  Serious: Yes (Hospitalization, Other)
  Sender: FDA-Public Use
  Company Number: KR-009507513-1608KOR003021

PATIENT
  Age: 56 Year
  Sex: Male

DRUGS (40)
  1. MANNITOL. [Concomitant]
     Active Substance: MANNITOL
     Indication: PREMEDICATION
     Dosage: 100 ML, ONCE
     Route: 042
     Dates: start: 20160831, end: 20160831
  2. BISOLVON [Concomitant]
     Active Substance: BROMHEXINE HYDROCHLORIDE
     Indication: PROPHYLAXIS
     Dosage: 8 MG, TID, ROUTE: GASTROSTOMY TUBE
     Route: 050
     Dates: start: 20160603, end: 20160804
  3. FENTORA [Concomitant]
     Active Substance: FENTANYL CITRATE
     Indication: CANCER PAIN
     Dosage: 1 TABLET (100 MCG), QD
     Route: 060
     Dates: start: 20160727
  4. DEXAMETHASONE SODIUM PHOSPHATE. [Concomitant]
     Active Substance: DEXAMETHASONE SODIUM PHOSPHATE
     Dosage: 5 MG, BID
     Route: 042
     Dates: start: 20160731, end: 20160804
  5. SCD MAGNESIUM OXIDE [Concomitant]
     Indication: CONSTIPATION PROPHYLAXIS
     Dosage: 500 MG, TID, ROUTE: GASTROSTOMY TUBE
     Route: 050
     Dates: start: 20160706, end: 20160816
  6. DUROGESIC [Concomitant]
     Active Substance: FENTANYL
     Indication: CANCER PAIN
     Dosage: 1 TRANSDERMAL PATCH, QD, STRENGHT: 50 MCG/H 21CM2
     Route: 062
     Dates: start: 20160318
  7. DUROGESIC [Concomitant]
     Active Substance: FENTANYL
     Indication: CANCER PAIN
     Dosage: 1 TRANSDERMAL PATCH, QD, STRENGTH: 25 MCG/H 10.5 CM2
     Route: 062
     Dates: start: 20160426, end: 20160904
  8. PETHIDINE HCL JEIL [Concomitant]
     Indication: PREMEDICATION
     Dosage: 25 MG, ONCE
     Route: 042
     Dates: start: 20160725, end: 20160725
  9. DEXAMETHASONE SODIUM PHOSPHATE. [Concomitant]
     Active Substance: DEXAMETHASONE SODIUM PHOSPHATE
     Dosage: 5 MG, BID
     Route: 042
     Dates: start: 20160724, end: 20160725
  10. EMEND (FOSAPREPITANT DIMEGLUMINE) [Suspect]
     Active Substance: FOSAPREPITANT DIMEGLUMINE
     Indication: PROPHYLAXIS OF NAUSEA AND VOMITING
     Dosage: 150 MG, ONCE
     Route: 042
     Dates: start: 20160726, end: 20160726
  11. DEXAMETHASONE SODIUM PHOSPHATE. [Concomitant]
     Active Substance: DEXAMETHASONE SODIUM PHOSPHATE
     Dosage: 12 MG, ONCE
     Route: 042
     Dates: start: 20160831, end: 20160831
  12. DEXAMETHASONE SODIUM PHOSPHATE. [Concomitant]
     Active Substance: DEXAMETHASONE SODIUM PHOSPHATE
     Dosage: 8 MG, ONCE
     Route: 042
     Dates: start: 20160901, end: 20160901
  13. DEXAMETHASONE SODIUM PHOSPHATE. [Concomitant]
     Active Substance: DEXAMETHASONE SODIUM PHOSPHATE
     Dosage: 8 MG, BID
     Route: 042
     Dates: start: 20160902, end: 20160903
  14. ALOXI [Concomitant]
     Active Substance: PALONOSETRON HYDROCHLORIDE
     Indication: ANTIEMETIC SUPPORTIVE CARE
     Dosage: 0.25 MG, ONCE
     Route: 042
     Dates: start: 20160726, end: 20160726
  15. ATIVAN [Concomitant]
     Active Substance: LORAZEPAM
     Indication: DEPRESSION
     Dosage: 0.5 MG, QD, ROUTE: GASTROSTOMY TUBE
     Route: 050
     Dates: start: 20160718, end: 20160731
  16. MUCOSTEN [Concomitant]
     Indication: PROPHYLAXIS
     Dosage: 300 MG, TID
     Route: 042
     Dates: start: 20160714, end: 20160913
  17. MANNITOL. [Concomitant]
     Active Substance: MANNITOL
     Indication: DRUG TOXICITY PROPHYLAXIS
     Dosage: 100 ML, ONCE
     Route: 042
     Dates: start: 20160726, end: 20160726
  18. LASIX [Concomitant]
     Active Substance: FUROSEMIDE
     Indication: PREMEDICATION
     Dosage: 20 MG, ONCE
     Route: 042
     Dates: start: 20160831, end: 20160831
  19. EMEND (FOSAPREPITANT DIMEGLUMINE) [Suspect]
     Active Substance: FOSAPREPITANT DIMEGLUMINE
     Dosage: 150 MG, ONCE
     Route: 042
     Dates: start: 20160831, end: 20160831
  20. CISPLATIN. [Concomitant]
     Active Substance: CISPLATIN
     Indication: CHEMOTHERAPY
     Dosage: 100 MG, ONCE; CYCLE 1
     Route: 042
     Dates: start: 20160726, end: 20160726
  21. FLUOROURACIL. [Concomitant]
     Active Substance: FLUOROURACIL
     Indication: TONGUE NEOPLASM MALIGNANT STAGE UNSPECIFIED
     Dosage: 1700 MG, QD ; CYCLE 1
     Route: 042
     Dates: start: 20160726, end: 20160729
  22. DEXAMETHASONE SODIUM PHOSPHATE. [Concomitant]
     Active Substance: DEXAMETHASONE SODIUM PHOSPHATE
     Dosage: 8 MG, BID
     Route: 042
     Dates: start: 20160728, end: 20160729
  23. LASIX [Concomitant]
     Active Substance: FUROSEMIDE
     Indication: DRUG TOXICITY PROPHYLAXIS
     Dosage: 20 MG, ONCE
     Route: 042
     Dates: start: 20160726, end: 20160726
  24. URSA TABLETS [Concomitant]
     Indication: PROPHYLAXIS
     Dosage: 100 MG, TID
     Route: 048
     Dates: start: 20160714, end: 20160804
  25. DEXAMETHASONE SODIUM PHOSPHATE. [Concomitant]
     Active Substance: DEXAMETHASONE SODIUM PHOSPHATE
     Dosage: 8 MG, ONCE
     Route: 042
     Dates: start: 20160727, end: 20160727
  26. OXYNORM [Concomitant]
     Active Substance: OXYCODONE HYDROCHLORIDE
     Indication: PAIN
     Dosage: 12 MG, QD
     Route: 042
     Dates: start: 20160720, end: 20160830
  27. ULTRACET [Concomitant]
     Active Substance: ACETAMINOPHEN\TRAMADOL HYDROCHLORIDE
     Indication: PAIN
     Dosage: 1 TABLET, BID, ROUTE: GASTROSTOMY TUBE
     Route: 050
     Dates: start: 20160624, end: 20160731
  28. TRIDOL (TRAMADOL HYDROCHLORIDE) [Concomitant]
     Indication: CANCER PAIN
     Dosage: 50 MG, QD
     Route: 042
     Dates: start: 20160715, end: 20160717
  29. TRIDOL (TRAMADOL HYDROCHLORIDE) [Concomitant]
     Dosage: 50 MG, ONCE
     Route: 042
     Dates: start: 20160802, end: 20160802
  30. CEFAMEZIN [Concomitant]
     Active Substance: CEFAZOLIN
     Indication: PROPHYLAXIS
     Dosage: 1 G, TID
     Route: 042
     Dates: start: 20160728, end: 20160730
  31. PETHIDINE HCL JEIL [Concomitant]
     Indication: PREMEDICATION
     Dosage: 25 MG, QD
     Route: 042
     Dates: start: 20160727, end: 20160728
  32. TYLENOL [Concomitant]
     Active Substance: ACETAMINOPHEN
     Indication: CANCER PAIN
     Dosage: 650 MG, TID
     Route: 048
     Dates: start: 20160719, end: 20160720
  33. CISPLATIN. [Concomitant]
     Active Substance: CISPLATIN
     Dosage: 74 MG, ONCE; CYCLE 1
     Route: 042
     Dates: start: 20160831, end: 20160831
  34. ALOXI [Concomitant]
     Active Substance: PALONOSETRON HYDROCHLORIDE
     Dosage: 0.25 MG, ONCE
     Route: 042
     Dates: start: 20160831, end: 20160831
  35. PETHIDINE HCL JEIL [Concomitant]
     Dosage: 25 MG, ONCE
     Route: 042
     Dates: start: 20160830, end: 20160830
  36. DEXAMETHASONE SODIUM PHOSPHATE. [Concomitant]
     Active Substance: DEXAMETHASONE SODIUM PHOSPHATE
     Indication: CANCER PAIN
     Dosage: 5 MG, QD
     Route: 042
     Dates: start: 20160721, end: 20160722
  37. DEXAMETHASONE SODIUM PHOSPHATE. [Concomitant]
     Active Substance: DEXAMETHASONE SODIUM PHOSPHATE
     Dosage: 5 MG, QD
     Route: 042
     Dates: start: 20160805, end: 20160807
  38. DEXAMETHASONE SODIUM PHOSPHATE. [Concomitant]
     Active Substance: DEXAMETHASONE SODIUM PHOSPHATE
     Indication: ANTIEMETIC SUPPORTIVE CARE
     Dosage: 12 MG, ONCE
     Route: 042
     Dates: start: 20160726, end: 20160726
  39. MIRTAX [Concomitant]
     Indication: DEPRESSION
     Dosage: 0.5 TABLET, QD, ROUTE: VIA GASTROSTOMY TUBE
     Route: 050
     Dates: start: 20160628, end: 20160804
  40. MEGACE [Concomitant]
     Active Substance: MEGESTROL ACETATE
     Indication: PROPHYLAXIS
     Dosage: 625 MG, QD
     Route: 048
     Dates: start: 20160714, end: 20160731

REACTIONS (5)
  - Pyrexia [Recovered/Resolved]
  - Sepsis [Recovered/Resolved]
  - Deep vein thrombosis [Not Recovered/Not Resolved]
  - Sepsis [Recovered/Resolved]
  - Colitis ischaemic [Recovered/Resolved]

NARRATIVE: CASE EVENT DATE: 20160730
